FAERS Safety Report 4721473-0 (Version None)
Quarter: 2005Q3

REPORT INFORMATION
  Report Type: 
  Country: None (occurrence: None)
  Receive Date: 20050721
  Receipt Date: 20040928
  Transmission Date: 20060218
  Serious: No
  Sender: FDA-Public Use
  Company Number: US-BRISTOL-MYERS SQUIBB COMPANY-12716338

PATIENT
  Age: 49 Year
  Sex: Male

DRUGS (1)
  1. COUMADIN [Suspect]
     Indication: AORTIC VALVE REPLACEMENT
     Route: 048
     Dates: start: 19980101

REACTIONS (3)
  - ARTHRALGIA [None]
  - FATIGUE [None]
  - LIVER FUNCTION TEST ABNORMAL [None]
